FAERS Safety Report 6355831-8 (Version None)
Quarter: 2009Q3

REPORT INFORMATION
  Report Type: 
  Country: None (occurrence: None)
  Receive Date: 20090915
  Receipt Date: 20090908
  Transmission Date: 20100115
  Serious: Yes (Other)
  Sender: FDA-Public Use
  Company Number: US-JNJFOC-20090903161

PATIENT
  Sex: Female
  Weight: 63.5 kg

DRUGS (6)
  1. FENTANYL TRANSDERMAL SYSTEM [Suspect]
     Indication: BACK PAIN
     Route: 062
     Dates: start: 20090905, end: 20090906
  2. ADDERALL XR 30 [Concomitant]
     Indication: ATTENTION DEFICIT/HYPERACTIVITY DISORDER
     Route: 048
  3. TRILEPTAL [Concomitant]
     Indication: DEPRESSION
     Route: 048
  4. ATIVAN [Concomitant]
     Indication: NERVOUSNESS
     Dosage: AS NEEDED
     Route: 048
  5. WELLBUTRIN [Concomitant]
     Indication: DEPRESSION
     Route: 048
  6. NEXIUM [Concomitant]
     Indication: DYSPEPSIA
     Route: 048

REACTIONS (8)
  - CHILLS [None]
  - DYSPNOEA [None]
  - MALAISE [None]
  - NAUSEA [None]
  - PALPITATIONS [None]
  - PYREXIA [None]
  - TREATMENT NONCOMPLIANCE [None]
  - WRONG TECHNIQUE IN DRUG USAGE PROCESS [None]
